FAERS Safety Report 5017189-6 (Version None)
Quarter: 2006Q2

REPORT INFORMATION
  Report Type: 
  Country: None (occurrence: None)
  Receive Date: 20060602
  Receipt Date: 20060523
  Transmission Date: 20061013
  Serious: Yes (Other)
  Sender: FDA-Public Use
  Company Number: FR-ABBOTT-06P-056-0333980-00

PATIENT
  Age: 29 Year
  Sex: Male

DRUGS (5)
  1. NORVIR [Suspect]
     Indication: PROPHYLAXIS AGAINST HIV INFECTION
     Route: 048
     Dates: start: 20060308, end: 20060316
  2. FOSAMPRENAVIR [Suspect]
     Indication: PROPHYLAXIS AGAINST HIV INFECTION
     Route: 048
     Dates: start: 20060308, end: 20060316
  3. LAMIVUDINE + ZIDOVUDINE [Suspect]
     Indication: PROPHYLAXIS AGAINST HIV INFECTION
     Route: 048
     Dates: start: 20060308, end: 20060316
  4. DOXYCYCLINE [Concomitant]
     Indication: SEXUALLY TRANSMITTED DISEASE
     Dates: start: 20060308
  5. DOXYCYCLINE [Concomitant]
     Indication: PROPHYLAXIS

REACTIONS (8)
  - ALANINE AMINOTRANSFERASE INCREASED [None]
  - ASPARTATE AMINOTRANSFERASE INCREASED [None]
  - CYTOLYTIC HEPATITIS [None]
  - DRUG ADMINISTRATION ERROR [None]
  - ERYTHEMA MULTIFORME [None]
  - ORAL SOFT TISSUE DISORDER [None]
  - PRURITUS [None]
  - SKIN EXFOLIATION [None]
